FAERS Safety Report 4650799-4 (Version None)
Quarter: 2005Q2

REPORT INFORMATION
  Report Type: 
  Country: None (occurrence: None)
  Receive Date: 20050503
  Receipt Date: 20050331
  Transmission Date: 20051028
  Serious: Yes (Hospitalization)
  Sender: FDA-Public Use
  Company Number: JP-GLAXOSMITHKLINE-B0376472A

PATIENT
  Age: 56 Year
  Sex: Female

DRUGS (6)
  1. ZEFIX [Suspect]
     Indication: HEPATITIS B
     Dosage: 100MG PER DAY
     Route: 048
     Dates: start: 20010301
  2. NEO-MINOPHAGEN C [Concomitant]
     Route: 042
  3. URSO 250 [Concomitant]
     Route: 048
  4. TAKEPRON [Concomitant]
     Route: 048
  5. MUCOSTA [Concomitant]
     Route: 048
  6. ALLOID G [Concomitant]
     Route: 048

REACTIONS (1)
  - HEPATIC NEOPLASM MALIGNANT [None]
